FAERS Safety Report 20131368 (Version 1)
Quarter: 2021Q4

REPORT INFORMATION
  Report Type: Spontaneous
  Country: US (occurrence: US)
  Receive Date: 20211130
  Receipt Date: 20211130
  Transmission Date: 20220303
  Serious: Yes (Other)
  Sender: FDA-Public Use
  Company Number: US-NOVARTISTESTPH-NVSC2021US265668

PATIENT
  Sex: Male

DRUGS (7)
  1. DOCETAXEL [Suspect]
     Active Substance: DOCETAXEL
     Indication: Hormone-refractory prostate cancer
     Dosage: 75 MG/M2
     Route: 065
     Dates: start: 20210819
  2. DOCETAXEL [Suspect]
     Active Substance: DOCETAXEL
     Dosage: 75 MG/M2
     Route: 065
     Dates: start: 20210909
  3. DOCETAXEL [Suspect]
     Active Substance: DOCETAXEL
     Dosage: 75 MG/M2
     Route: 065
     Dates: start: 20210930
  4. CASODEX [Suspect]
     Active Substance: BICALUTAMIDE
     Indication: Product used for unknown indication
     Dosage: UNK
     Route: 065
     Dates: start: 20210908
  5. PREDNISONE [Suspect]
     Active Substance: PREDNISONE
     Indication: Product used for unknown indication
     Dosage: UNK
     Route: 065
     Dates: start: 20210819
  6. PREDNISONE [Suspect]
     Active Substance: PREDNISONE
     Dosage: UNK
     Route: 065
     Dates: start: 20210909
  7. PREDNISONE [Suspect]
     Active Substance: PREDNISONE
     Dosage: UNK
     Route: 065
     Dates: start: 20210930

REACTIONS (2)
  - Hormone-refractory prostate cancer [Unknown]
  - Malignant neoplasm progression [Unknown]
